FAERS Safety Report 4289219-0 (Version None)
Quarter: 2004Q1

REPORT INFORMATION
  Report Type: 
  Country: None (occurrence: None)
  Receive Date: 20040205
  Receipt Date: 20040126
  Transmission Date: 20041129
  Serious: Yes (Hospitalization)
  Sender: FDA-Public Use
  Company Number: 2004196822IT

PATIENT
  Age: 68 Year
  Sex: Male

DRUGS (2)
  1. DEPO-MEDROL [Suspect]
     Indication: ARTHROPATHY
     Dosage: 1 ML 40 MG/ML, INTRA-ARTICULAR
     Route: 014
     Dates: start: 20031221, end: 20031221
  2. ANTIHYPERTENSIVES [Concomitant]

REACTIONS (4)
  - BALANCE DISORDER [None]
  - BRAIN SCAN ABNORMAL [None]
  - DIZZINESS [None]
  - MUSCLE SPASMS [None]
